FAERS Safety Report 17835109 (Version 1)
Quarter: 2020Q2

REPORT INFORMATION
  Report Type: Spontaneous
  Country: MT (occurrence: MT)
  Receive Date: 20200528
  Receipt Date: 20200528
  Transmission Date: 20200714
  Serious: Yes (Other)
  Sender: FDA-Public Use
  Company Number: MT-MYLANLABS-2020M1052070

PATIENT
  Age: 78 Year
  Sex: Female

DRUGS (1)
  1. HYDROCORTISONE. [Suspect]
     Active Substance: HYDROCORTISONE
     Indication: PSORIASIS
     Dosage: APPLIED DAILY OR ON ALTERNATE DAYS; 15G TUBE
     Route: 061

REACTIONS (2)
  - Cushing^s syndrome [Unknown]
  - Product administration error [Unknown]
